FAERS Safety Report 21882230 (Version 2)
Quarter: 2024Q4

REPORT INFORMATION
  Report Type: Report from Study
  Country: DE (occurrence: DE)
  Receive Date: 20230119
  Receipt Date: 20241204
  Transmission Date: 20250115
  Serious: Yes (Other)
  Sender: ABBVIE
  Company Number: DE-ABBVIE-4273864

PATIENT
  Age: 73 Year
  Sex: Female
  Weight: 63 kg

DRUGS (2)
  1. SKYRIZI [Suspect]
     Active Substance: RISANKIZUMAB-RZAA
     Indication: Psoriasis
     Dosage: 150MG/ 12 WKS. ON 1 D/WK.
     Route: 058
     Dates: end: 20230113
  2. SKYRIZI [Suspect]
     Active Substance: RISANKIZUMAB-RZAA
     Dosage: 150MG/ 12 WKS. ON 1 D/WK.
     Route: 058
     Dates: start: 20211125, end: 20220922

REACTIONS (4)
  - Retinal artery occlusion [Recovered/Resolved]
  - Aortic aneurysm [Not Recovered/Not Resolved]
  - Aortic valve stenosis [Recovered/Resolved]
  - Macular oedema [Recovering/Resolving]

NARRATIVE: CASE EVENT DATE: 20220727
